FAERS Safety Report 7319732-0 (Version None)
Quarter: 2011Q1

REPORT INFORMATION
  Report Type: 
  Country: None (occurrence: None)
  Receive Date: 20110228
  Receipt Date: 20100909
  Transmission Date: 20110831
  Serious: No
  Sender: FDA-Public Use
  Company Number: A0878180A

PATIENT
  Age: 33 Year
  Sex: Female

DRUGS (4)
  1. SEROQUEL [Concomitant]
     Indication: BIPOLAR DISORDER
     Dosage: 100MG PER DAY
     Route: 048
     Dates: start: 20090915, end: 20100820
  2. KLONOPIN [Concomitant]
     Indication: ANXIETY
     Dosage: .5MG PER DAY
     Route: 048
     Dates: start: 20090915, end: 20100820
  3. PAXIL [Suspect]
     Indication: BIPOLAR DISORDER
     Dosage: 10MG PER DAY
     Route: 048
     Dates: start: 20100122, end: 20100820
  4. LAMICTAL [Suspect]
     Indication: BIPOLAR DISORDER
     Dosage: 200MG PER DAY
     Route: 048
     Dates: start: 20090915, end: 20100823

REACTIONS (1)
  - DRUG EXPOSURE DURING PREGNANCY [None]
